FAERS Safety Report 25431422 (Version 2)
Quarter: 2025Q2

REPORT INFORMATION
  Report Type: Spontaneous
  Country: BG (occurrence: BG)
  Receive Date: 20250613
  Receipt Date: 20250613
  Transmission Date: 20250717
  Serious: Yes (Hospitalization)
  Sender: ALEXION PHARMACEUTICALS
  Company Number: BG-AstraZeneca-CH-00885956A

PATIENT

DRUGS (1)
  1. DAPAGLIFLOZIN [Suspect]
     Active Substance: DAPAGLIFLOZIN
     Route: 065

REACTIONS (5)
  - Cardiac failure [Recovered/Resolved]
  - Aortic stenosis [Recovered/Resolved]
  - Viral infection [Recovered/Resolved with Sequelae]
  - Atrial fibrillation [Recovering/Resolving]
  - Blood pressure decreased [Recovering/Resolving]
